FAERS Safety Report 8367643-4 (Version None)
Quarter: 2012Q1

REPORT INFORMATION
  Report Type: 
  Country: None (occurrence: None)
  Receive Date: 20120323
  Receipt Date: 20110802
  Transmission Date: 20120608
  Serious: Yes (Hospitalization, Other)
  Sender: FDA-Public Use
  Company Number: 163-21880-11080509

PATIENT
  Age: 68 Year
  Sex: Male

DRUGS (10)
  1. ASPIRIN [Concomitant]
  2. ZOMETA [Concomitant]
  3. DUTASTERIDE (DUTASTERIDE) [Concomitant]
  4. SINEMET [Concomitant]
  5. REVLIMID [Suspect]
     Indication: MULTIPLE MYELOMA
     Dosage: 15 MG, 1 IN 1 D, PO
     Route: 048
     Dates: start: 20110121
  6. PROTONIX [Concomitant]
  7. ROSUVASTATIN [Concomitant]
  8. MIDODRINE HYDROCHLORIDE [Concomitant]
  9. FLUDROCORTISONE ACETATE [Concomitant]
  10. CARDIOLIPIN [Concomitant]

REACTIONS (3)
  - ACUTE RESPIRATORY FAILURE [None]
  - SYNCOPE [None]
  - FALL [None]
